FAERS Safety Report 7086795-X (Version None)
Quarter: 2010Q4

REPORT INFORMATION
  Report Type: 
  Country: None (occurrence: None)
  Receive Date: 20101105
  Receipt Date: 20101025
  Transmission Date: 20110411
  Serious: Yes (Other)
  Sender: FDA-Public Use
  Company Number: DE-WATSON-2010-14124

PATIENT
  Age: 18 Year
  Sex: Female

DRUGS (4)
  1. FLUOROURACIL [Suspect]
     Indication: NASOPHARYNGEAL CANCER
     Dosage: 1000 MG/M2, DAYS 1-5
     Route: 042
  2. CISPLATIN [Suspect]
     Indication: NASOPHARYNGEAL CANCER
     Dosage: 100 MG/M2, DAY 1
     Route: 042
  3. DEXAMETHASONE [Suspect]
     Indication: ANTIEMETIC SUPPORTIVE CARE
     Dosage: UNK
  4. CONTRACEPTIVES NOS [Suspect]
     Indication: CONTRACEPTION
     Dosage: UNK

REACTIONS (1)
  - PERIPHERAL EMBOLISM [None]
